FAERS Safety Report 8257716-9 (Version None)
Quarter: 2012Q2

REPORT INFORMATION
  Report Type: 
  Country: None (occurrence: None)
  Receive Date: 20120404
  Receipt Date: 20120327
  Transmission Date: 20120825
  Serious: Yes (Hospitalization, Other)
  Sender: FDA-Public Use
  Company Number: US-AMGEN-USASP2012019636

PATIENT
  Age: 69 Year
  Sex: Male

DRUGS (1)
  1. ENBREL [Suspect]
     Indication: RHEUMATOID ARTHRITIS
     Dosage: 50 MG, QWK
     Dates: start: 20030601, end: 20060101

REACTIONS (6)
  - BLADDER DISORDER [None]
  - PYODERMA GANGRENOSUM [None]
  - PROSTATE CANCER [None]
  - INCISION SITE INFECTION [None]
  - COLON NEOPLASM [None]
  - RHEUMATOID ARTHRITIS [None]
